FAERS Safety Report 5272220-8 (Version None)
Quarter: 2007Q1

REPORT INFORMATION
  Report Type: 
  Country: None (occurrence: None)
  Receive Date: 20070322
  Receipt Date: 20070110
  Transmission Date: 20070707
  Serious: No
  Sender: FDA-Public Use
  Company Number: US-GLAXOSMITHKLINE-A0635207A

PATIENT
  Sex: Male

DRUGS (1)
  1. AVANDARYL [Suspect]

REACTIONS (1)
  - WEIGHT INCREASED [None]
